FAERS Safety Report 9648150 (Version 1)
Quarter: 2013Q4

REPORT INFORMATION
  Report Type: Spontaneous
  Country: CA (occurrence: None)
  Receive Date: 20131024
  Receipt Date: 20131024
  Transmission Date: 20140711
  Serious: Yes (Disabling)
  Sender: FDA-Public Use
  Company Number: None

PATIENT
  Sex: Female
  Weight: 65.32 kg

DRUGS (9)
  1. LESCOL [Suspect]
     Indication: HYPERCHOLESTEROLAEMIA
     Dosage: 1 PILL
     Route: 048
  2. METFORMIN [Concomitant]
  3. ATACAND [Concomitant]
  4. LOSEC [Concomitant]
  5. NASONEX [Concomitant]
  6. VITALUX PLUS [Concomitant]
  7. TYLENOL [Concomitant]
  8. VITAMIN D [Concomitant]
  9. COENZYME Q10 [Concomitant]

REACTIONS (1)
  - Muscle spasms [None]
